FAERS Safety Report 15194049 (Version 1)
Quarter: 2018Q3

REPORT INFORMATION
  Report Type: Spontaneous
  Country: GB (occurrence: GB)
  Receive Date: 20180725
  Receipt Date: 20180725
  Transmission Date: 20181010
  Serious: Yes (Other)
  Sender: FDA-Public Use
  Company Number: GB-TEVA-2011B-03068

PATIENT
  Age: 24 Year
  Sex: Male
  Weight: 89 kg

DRUGS (6)
  1. LORAZEPAM. [Concomitant]
     Active Substance: LORAZEPAM
     Indication: PRESYNCOPE
     Dosage: 3 MILLIGRAM DAILY;
     Route: 048
     Dates: start: 20070622, end: 20100430
  2. CITALOPRAM [Suspect]
     Active Substance: CITALOPRAM HYDROBROMIDE
     Indication: OBSESSIVE-COMPULSIVE DISORDER
     Dosage: 40 MILLIGRAM DAILY;
     Route: 065
     Dates: end: 20090120
  3. CITALOPRAM [Suspect]
     Active Substance: CITALOPRAM HYDROBROMIDE
     Dosage: 40 MILLIGRAM DAILY;
     Dates: start: 2008
  4. CITALOPRAM [Suspect]
     Active Substance: CITALOPRAM HYDROBROMIDE
     Dosage: 20 MILLIGRAM DAILY;
     Dates: start: 200711
  5. LORAZEPAM. [Concomitant]
     Active Substance: LORAZEPAM
     Dosage: 1.5 MILLIGRAM DAILY;
     Route: 048
     Dates: start: 20100430
  6. CITALOPRAM [Suspect]
     Active Substance: CITALOPRAM HYDROBROMIDE
     Dosage: 20 MILLIGRAM DAILY;
     Route: 065
     Dates: start: 20081227

REACTIONS (9)
  - Depressed mood [Not Recovered/Not Resolved]
  - Orgasmic sensation decreased [Recovering/Resolving]
  - Headache [Recovered/Resolved]
  - Depression [Not Recovered/Not Resolved]
  - Suicidal ideation [Unknown]
  - Sexual dysfunction [Not Recovered/Not Resolved]
  - Premature ejaculation [Recovered/Resolved]
  - Libido decreased [Not Recovered/Not Resolved]
  - Self-injurious ideation [Unknown]

NARRATIVE: CASE EVENT DATE: 200711
